FAERS Safety Report 17080825 (Version 2)
Quarter: 2019Q4

REPORT INFORMATION
  Report Type: Spontaneous
  Country: US (occurrence: US)
  Receive Date: 20191127
  Receipt Date: 20191212
  Transmission Date: 20200122
  Serious: No
  Sender: FDA-Public Use
  Company Number: US-GLAXOSMITHKLINE-US2019209354

PATIENT
  Sex: Male

DRUGS (1)
  1. VENTOLIN HFA [Suspect]
     Active Substance: ALBUTEROL SULFATE
     Indication: ASTHMA
     Dosage: INHALE 2 PUFF(S) EVERY 4-6 HRS AS NEEDED PRN
     Route: 055
     Dates: start: 20190707

REACTIONS (1)
  - Drug ineffective [Not Recovered/Not Resolved]
